FAERS Safety Report 21762658 (Version 2)
Quarter: 2023Q1

REPORT INFORMATION
  Report Type: Spontaneous
  Country: IL (occurrence: IL)
  Receive Date: 20221221
  Receipt Date: 20230105
  Transmission Date: 20230418
  Serious: No
  Sender: FDA-Public Use
  Company Number: IL-ELI_LILLY_AND_COMPANY-IL202212009482

PATIENT
  Sex: Male

DRUGS (1)
  1. CIALIS [Suspect]
     Active Substance: TADALAFIL
     Indication: Benign prostatic hyperplasia
     Dosage: 10 MG, UNKNOWN
     Route: 065
     Dates: start: 2017

REACTIONS (2)
  - Posterior capsule opacification [Unknown]
  - Cataract [Unknown]

NARRATIVE: CASE EVENT DATE: 20221101
